FAERS Safety Report 7483592-8 (Version None)
Quarter: 2011Q2

REPORT INFORMATION
  Report Type: 
  Country: None (occurrence: None)
  Receive Date: 20110517
  Receipt Date: 20110510
  Transmission Date: 20111010
  Serious: Yes (Other)
  Sender: FDA-Public Use
  Company Number: US-PFIZER INC-2011086720

PATIENT
  Sex: Female
  Weight: 77 kg

DRUGS (1)
  1. XALATAN [Suspect]
     Indication: INTRAOCULAR PRESSURE INCREASED
     Dosage: ONE DROP IN BOTH EYES, DAILY
     Route: 047

REACTIONS (1)
  - INTRAOCULAR PRESSURE INCREASED [None]
